FAERS Safety Report 25139927 (Version 4)
Quarter: 2025Q2

REPORT INFORMATION
  Report Type: Spontaneous
  Country: CN (occurrence: CN)
  Receive Date: 20250331
  Receipt Date: 20250410
  Transmission Date: 20250716
  Serious: Yes (Hospitalization, Other)
  Sender: MACLEODS
  Company Number: CN-MACLEODS PHARMA-MAC2025052337

PATIENT

DRUGS (1)
  1. IBANDRONATE SODIUM [Suspect]
     Active Substance: IBANDRONATE SODIUM
     Indication: Product used for unknown indication

REACTIONS (4)
  - Pneumonitis chemical [Recovered/Resolved]
  - Blister [Recovered/Resolved]
  - Blood bilirubin increased [Unknown]
  - Accidental exposure to product [Recovered/Resolved]
